FAERS Safety Report 10419160 (Version 1)
Quarter: 2014Q2

REPORT INFORMATION
  Report Type: Report from Study
  Country: US (occurrence: None)
  Receive Date: 20140627
  Receipt Date: 20140627
  Transmission Date: 20141212
  Serious: No
  Sender: FDA-Public Use
  Company Number: CABO-14004201

PATIENT
  Age: 37 Year
  Sex: Male

DRUGS (5)
  1. COMETRIQ (CABOZANTINIB) CAPSULE [Suspect]
     Indication: THYROID CANCER
     Route: 048
     Dates: start: 20140324
  2. SYNTHROID (LEVOTHYROXINE SODIUM) [Concomitant]
  3. VITAMIN D (COLECALCIFEROL) [Concomitant]
  4. NORVASC (AMLODIPINE BESILATE) [Concomitant]
  5. LISINOPRIL (LISINOPRIL) [Concomitant]

REACTIONS (2)
  - Photophobia [None]
  - Blood pressure increased [None]
